FAERS Safety Report 5941304-0 (Version None)
Quarter: 2008Q4

REPORT INFORMATION
  Report Type: 
  Country: None (occurrence: None)
  Receive Date: 20081105
  Receipt Date: 20081031
  Transmission Date: 20090506
  Serious: Yes (Other)
  Sender: FDA-Public Use
  Company Number: GB-TEVA-179768ISR

PATIENT
  Age: 24 Year
  Sex: Female

DRUGS (1)
  1. PREDNISOLONE [Suspect]
     Indication: CUTANEOUS LUPUS ERYTHEMATOSUS
     Route: 048

REACTIONS (2)
  - GINGIVITIS [None]
  - WEIGHT INCREASED [None]
